FAERS Safety Report 13924428 (Version 3)
Quarter: 2018Q1

REPORT INFORMATION
  Report Type: Report from Study
  Country: US (occurrence: US)
  Receive Date: 20170831
  Receipt Date: 20180209
  Transmission Date: 20180508
  Serious: Yes (Death, Hospitalization, Other)
  Sender: FDA-Public Use
  Company Number: PHEH2017US027863

PATIENT
  Age: 62 Year
  Sex: Female
  Weight: 43.6 kg

DRUGS (1)
  1. GLEEVEC [Suspect]
     Active Substance: IMATINIB MESYLATE
     Indication: MALIGNANT MELANOMA
     Dosage: 400 MG, QD
     Route: 048
     Dates: start: 20170117, end: 20170618

REACTIONS (11)
  - Gastrointestinal motility disorder [Unknown]
  - Scab [Recovered/Resolved]
  - Varicella zoster virus infection [Unknown]
  - Malignant neoplasm progression [Fatal]
  - Herpes zoster [Recovered/Resolved]
  - Rash vesicular [Recovered/Resolved]
  - Metastatic malignant melanoma [Fatal]
  - Haematochezia [Unknown]
  - Oncologic complication [Fatal]
  - Rash pustular [Recovered/Resolved]
  - Rectal haemorrhage [Unknown]

NARRATIVE: CASE EVENT DATE: 20170618
